FAERS Safety Report 24211303 (Version 2)
Quarter: 2024Q3

REPORT INFORMATION
  Report Type: Spontaneous
  Country: US (occurrence: US)
  Receive Date: 20240814
  Receipt Date: 20240830
  Transmission Date: 20241017
  Serious: Yes (Other)
  Sender: BAYER
  Company Number: US-BAYER-2024A112436

PATIENT
  Age: 74 Year
  Sex: Male

DRUGS (3)
  1. NUBEQA [Suspect]
     Active Substance: DAROLUTAMIDE
     Indication: Prostate cancer
     Dosage: UNK
     Dates: start: 2023
  2. NUBEQA [Suspect]
     Active Substance: DAROLUTAMIDE
     Indication: Prostate cancer
     Dosage: UNK
  3. NUBEQA [Suspect]
     Active Substance: DAROLUTAMIDE
     Indication: Prostate cancer
     Dosage: UNK

REACTIONS (9)
  - Neoplasm malignant [Recovered/Resolved]
  - Headache [None]
  - Dizziness [Recovered/Resolved]
  - Asthenia [None]
  - Gastrointestinal disorder [Recovered/Resolved]
  - Limb discomfort [Recovered/Resolved]
  - Back disorder [Recovered/Resolved]
  - Cancer pain [Recovered/Resolved]
  - Product dose omission issue [None]

NARRATIVE: CASE EVENT DATE: 20240701
